FAERS Safety Report 12860475 (Version 1)
Quarter: 2016Q4

REPORT INFORMATION
  Report Type: Spontaneous
  Country: US (occurrence: US)
  Receive Date: 20161019
  Receipt Date: 20161019
  Transmission Date: 20170207
  Serious: No
  Sender: FDA-Public Use
  Company Number: US-ASTRAZENECA-2016SF06909

PATIENT
  Sex: Female

DRUGS (1)
  1. SYMBICORT [Suspect]
     Active Substance: BUDESONIDE\FORMOTEROL FUMARATE DIHYDRATE
     Route: 055
     Dates: start: 20161006

REACTIONS (4)
  - Lymphadenopathy [Unknown]
  - Cough [Unknown]
  - Off label use [Unknown]
  - Dysphonia [Unknown]
